FAERS Safety Report 9972051 (Version 1)
Quarter: 2014Q1

REPORT INFORMATION
  Report Type: Report from Study
  Country: US (occurrence: US)
  Receive Date: 20140306
  Receipt Date: 20140306
  Transmission Date: 20141002
  Serious: No
  Sender: FDA-Public Use
  Company Number: US-ABBVIE-13P-163-1148536-00

PATIENT
  Age: 25 Year
  Sex: Female
  Weight: 56.75 kg

DRUGS (4)
  1. HUMIRA [Suspect]
     Indication: CROHN^S DISEASE
     Route: 058
     Dates: start: 201301
  2. IODINE [Suspect]
     Indication: PRODUCT USED FOR UNKNOWN INDICATION
  3. ASACOL HD [Concomitant]
     Indication: CROHN^S DISEASE
     Route: 048
  4. LOOVRAL [Concomitant]
     Indication: CONTRACEPTION
     Route: 048

REACTIONS (6)
  - Device malfunction [Unknown]
  - Drug dose omission [Unknown]
  - Injection site haemorrhage [Recovered/Resolved]
  - Injection site pain [Not Recovered/Not Resolved]
  - Injection site pain [Not Recovered/Not Resolved]
  - Iodine allergy [Unknown]
